FAERS Safety Report 5715563-3 (Version None)
Quarter: 2008Q2

REPORT INFORMATION
  Report Type: 
  Country: None (occurrence: None)
  Receive Date: 20080424
  Receipt Date: 20080417
  Transmission Date: 20081010
  Serious: Yes (Hospitalization)
  Sender: FDA-Public Use
  Company Number: TR-SP-2008-00493

PATIENT
  Age: 62 Year
  Sex: Male

DRUGS (2)
  1. IMMUCYST [Suspect]
     Indication: BLADDER CANCER
     Dosage: ONCE
     Route: 042
     Dates: start: 20080208
  2. IMMUCYST [Suspect]
     Dosage: ONCE
     Route: 042
     Dates: start: 20080208

REACTIONS (5)
  - CHILLS [None]
  - HEPATIC ENCEPHALOPATHY [None]
  - HEPATIC FAILURE [None]
  - INCORRECT ROUTE OF DRUG ADMINISTRATION [None]
  - PYREXIA [None]
